FAERS Safety Report 9197127 (Version 1)
Quarter: 2013Q1

REPORT INFORMATION
  Report Type: Spontaneous
  Country: FR (occurrence: FR)
  Receive Date: 20130328
  Receipt Date: 20130328
  Transmission Date: 20140127
  Serious: Yes (Other)
  Sender: FDA-Public Use
  Company Number: FR-ROCHE-1205045

PATIENT
  Age: 78 Year
  Sex: Male

DRUGS (9)
  1. ROCEPHINE [Suspect]
     Indication: PRODUCT USED FOR UNKNOWN INDICATION
     Route: 042
     Dates: start: 20130216, end: 20130218
  2. ROCEPHINE [Suspect]
     Route: 065
     Dates: start: 20130219
  3. NOVONORM [Suspect]
     Indication: TYPE 2 DIABETES MELLITUS
     Route: 065
     Dates: end: 20130118
  4. NOVONORM [Suspect]
     Dosage: RESTARTED
     Route: 065
  5. LASILIX [Concomitant]
  6. PLAVIX [Concomitant]
  7. KARDEGIC [Concomitant]
  8. ADENURIC [Concomitant]
  9. BISOPROLOL [Concomitant]

REACTIONS (1)
  - Hypoglycaemia [Recovered/Resolved]
